FAERS Safety Report 8804632 (Version 1)
Quarter: 2012Q4

REPORT INFORMATION
  Report Type: 
  Country: US (occurrence: US)
  Receive Date: 20120922
  Receipt Date: 20120922
  Transmission Date: 20130627
  Serious: No
  Sender: FDA-Public Use
  Company Number: US-TEVA-357859USA

PATIENT

DRUGS (1)
  1. NUVIGIL [Suspect]

REACTIONS (1)
  - Drug effect increased [Unknown]
